FAERS Safety Report 8776688 (Version 2)
Quarter: 2012Q4

REPORT INFORMATION
  Report Type: 
  Country: JP (occurrence: JP)
  Receive Date: 20120910
  Receipt Date: 20121025
  Transmission Date: 20130627
  Serious: Yes (Hospitalization)
  Sender: FDA-Public Use
  Company Number: PHHY2012JP075729

PATIENT
  Age: 65 Year
  Sex: Female

DRUGS (2)
  1. GLIVEC [Suspect]
     Indication: GASTROINTESTINAL STROMAL TUMOUR
     Dosage: 300 mg, daily
     Route: 048
     Dates: start: 200508, end: 201101
  2. LAXATIVES [Suspect]

REACTIONS (4)
  - Melanosis coli [Unknown]
  - Oedema peripheral [Unknown]
  - Hypoalbuminaemia [Recovered/Resolved]
  - Anaemia [Recovered/Resolved]
